FAERS Safety Report 6007913-8 (Version None)
Quarter: 2008Q4

REPORT INFORMATION
  Report Type: 
  Country: None (occurrence: None)
  Receive Date: 20081217
  Receipt Date: 20080610
  Transmission Date: 20090506
  Serious: No
  Sender: FDA-Public Use
  Company Number: US-ASTRAZENECA-2008UW11619

PATIENT
  Age: 72 Year
  Sex: Female
  Weight: 90.7 kg

DRUGS (11)
  1. CRESTOR [Suspect]
     Indication: BLOOD CHOLESTEROL INCREASED
     Route: 048
     Dates: start: 20080501
  2. COUMADIN [Concomitant]
     Dosage: 5 MG OR 2MG DEPENDING ON THE PT RESULTS
  3. MEDROXYPROGESTERONE [Concomitant]
     Dosage: 10 MG/ 10 DAYS/ MONTH
  4. ALPRAZOLAM [Concomitant]
     Indication: ATRIAL FIBRILLATION
  5. FUROSEMIDE [Concomitant]
  6. COLESTID [Concomitant]
  7. TICLOPIDINE HCL [Concomitant]
  8. OMEPRAZOLE [Concomitant]
     Route: 048
  9. LISINOPRIL [Concomitant]
     Route: 048
  10. MENEST [Concomitant]
  11. AMLODIPINE [Concomitant]
     Dosage: 1

REACTIONS (1)
  - OEDEMA PERIPHERAL [None]
